FAERS Safety Report 10201943 (Version 1)
Quarter: 2014Q2

REPORT INFORMATION
  Report Type: Spontaneous
  Country: CA (occurrence: CA)
  Receive Date: 20140528
  Receipt Date: 20140528
  Transmission Date: 20141212
  Serious: Yes (Hospitalization)
  Sender: FDA-Public Use
  Company Number: CA-BRISTOL-MYERS SQUIBB COMPANY-20776423

PATIENT
  Age: 62 Year
  Sex: Male

DRUGS (8)
  1. WARFARIN SODIUM [Suspect]
  2. AXITINIB [Suspect]
     Indication: RENAL CANCER
     Dosage: INITIALLY 10 MG?INT ON NOV2013?RESTARTED ON 16DEC13
  3. SYNTHROID [Concomitant]
  4. NORVASC [Concomitant]
  5. METFORMIN [Concomitant]
     Indication: DIABETES MELLITUS
  6. HYDROCHLOROTHIAZIDE [Concomitant]
  7. DIPHENHYDRAMINE HCL [Concomitant]
  8. SUTENT [Concomitant]
     Dates: start: 201301

REACTIONS (6)
  - Haemorrhagic stroke [Recovered/Resolved]
  - Dehydration [Recovered/Resolved]
  - International normalised ratio increased [Recovered/Resolved]
  - Fatigue [Recovered/Resolved]
  - Nausea [Recovered/Resolved]
  - Asthenia [Recovered/Resolved]
